FAERS Safety Report 8592618-X (Version None)
Quarter: 2012Q3

REPORT INFORMATION
  Report Type: 
  Country: None (occurrence: None)
  Receive Date: 20120814
  Receipt Date: 20120807
  Transmission Date: 20120928
  Serious: Yes (Other)
  Sender: FDA-Public Use
  Company Number: US-ACTELION-A-US2011-50434

PATIENT
  Age: 64 Year
  Sex: Female

DRUGS (2)
  1. ASPIRIN [Concomitant]
  2. TRACLEER [Suspect]
     Indication: PULMONARY ARTERIAL HYPERTENSION
     Dosage: UNK
     Route: 048

REACTIONS (5)
  - PLATELET COUNT ABNORMAL [None]
  - DYSPNOEA [None]
  - NASOPHARYNGITIS [None]
  - SMALL CELL LUNG CANCER STAGE UNSPECIFIED [None]
  - NEOPLASM MALIGNANT [None]
